FAERS Safety Report 7769697-2 (Version None)
Quarter: 2011Q3

REPORT INFORMATION
  Report Type: 
  Country: None (occurrence: None)
  Receive Date: 20110922
  Receipt Date: 20100809
  Transmission Date: 20111222
  Serious: No
  Sender: FDA-Public Use
  Company Number: US-ASTRAZENECA-2007UW21638

PATIENT
  Age: 687 Month
  Sex: Male
  Weight: 93.4 kg

DRUGS (9)
  1. CLONAZEPAM [Concomitant]
     Dosage: STRENGTH: 0.5 - 2 MG
     Dates: start: 20040412
  2. DIVALPROEX SODIUM [Concomitant]
     Dates: start: 20041219
  3. SEROQUEL [Suspect]
     Indication: DEPRESSION
     Dosage: 200 MG - 500 MG
     Route: 048
     Dates: start: 19970301
  4. SEROQUEL [Suspect]
     Indication: BIPOLAR DISORDER
     Dosage: 200 MG - 500 MG
     Route: 048
     Dates: start: 19970301
  5. GREEN TEA SUPPLEMENT [Concomitant]
     Indication: WEIGHT CONTROL
  6. GEODON [Concomitant]
  7. PAROXETINE HYDROCHLORIDE [Concomitant]
     Dates: start: 20041004
  8. SEROQUEL [Suspect]
     Dosage: STRENGTH  100 - 200 MG
     Route: 048
     Dates: start: 20040409
  9. SEROQUEL [Suspect]
     Dosage: STRENGTH  100 - 200 MG
     Route: 048
     Dates: start: 20040409

REACTIONS (6)
  - JOINT INJURY [None]
  - TYPE 2 DIABETES MELLITUS [None]
  - ROAD TRAFFIC ACCIDENT [None]
  - BACK INJURY [None]
  - DIABETES MELLITUS [None]
  - HYPERGLYCAEMIA [None]
